FAERS Safety Report 6963023-4 (Version None)
Quarter: 2010Q3

REPORT INFORMATION
  Report Type: 
  Country: None (occurrence: None)
  Receive Date: 20100902
  Receipt Date: 20100819
  Transmission Date: 20110219
  Serious: Yes (Other)
  Sender: FDA-Public Use
  Company Number: US-ELI_LILLY_AND_COMPANY-US201008006437

PATIENT
  Sex: Male

DRUGS (5)
  1. HUMALOG [Suspect]
     Indication: TYPE 2 DIABETES MELLITUS
     Dosage: 5 U, 3/D
  2. HUMALOG [Suspect]
     Dosage: 7 U, 3/D
  3. HUMULIN R [Suspect]
     Indication: TYPE 2 DIABETES MELLITUS
     Dosage: 25 U, 2/D
  4. TRICOR [Concomitant]
  5. LIPITOR [Concomitant]

REACTIONS (5)
  - HYPERHIDROSIS [None]
  - HYPOGLYCAEMIC UNCONSCIOUSNESS [None]
  - INCORRECT DOSE ADMINISTERED [None]
  - SYNCOPE [None]
  - VISUAL ACUITY REDUCED [None]
